FAERS Safety Report 5418351-0 (Version None)
Quarter: 2007Q3

REPORT INFORMATION
  Report Type: 
  Country: None (occurrence: None)
  Receive Date: 20070817
  Receipt Date: 20070809
  Transmission Date: 20080115
  Serious: Yes (Hospitalization)
  Sender: FDA-Public Use
  Company Number: FR-JNJFOC-20070802707

PATIENT
  Age: 30 Year
  Sex: Male

DRUGS (2)
  1. IMODIUM [Suspect]
     Indication: DRUG USE FOR UNKNOWN INDICATION
     Route: 048
  2. DOLIPRANE [Concomitant]

REACTIONS (5)
  - ALTERED STATE OF CONSCIOUSNESS [None]
  - ASTHENIA [None]
  - DIPLOPIA [None]
  - EXPIRED DRUG ADMINISTERED [None]
  - VERTIGO [None]
